FAERS Safety Report 9595982 (Version 1)
Quarter: 2013Q4

REPORT INFORMATION
  Report Type: Spontaneous
  Country: GB (occurrence: GB)
  Receive Date: 20131004
  Receipt Date: 20131004
  Transmission Date: 20140711
  Serious: Yes (Other)
  Sender: FDA-Public Use
  Company Number: GB-WATSON-2013-17317

PATIENT
  Age: 38 Year
  Sex: Female
  Weight: 80 kg

DRUGS (10)
  1. VITAMIN E (UNKNOWN) [Suspect]
     Indication: VITAMIN SUPPLEMENTATION
     Dosage: 1 DF, DAILY
     Route: 065
     Dates: start: 20120919, end: 20120922
  2. THIAMINE (UNKNOWN) [Suspect]
     Indication: VITAMIN SUPPLEMENTATION
     Dosage: 1 DF, DAILY
     Route: 065
     Dates: start: 20120919, end: 20120922
  3. VITAMIN B2 (UNKNOWN) [Suspect]
     Indication: VITAMIN SUPPLEMENTATION
     Dosage: 1 DF, DAILY
     Route: 065
     Dates: start: 20120919, end: 20120922
  4. PYRIDOXINE (UNKNOWN) [Suspect]
     Indication: VITAMIN SUPPLEMENTATION
     Dosage: 1 DF, DAILY
     Route: 065
     Dates: start: 20120919, end: 20120922
  5. ASCORBIC ACID (UNKNOWN) [Suspect]
     Indication: VITAMIN SUPPLEMENTATION
     Dosage: 1 DF, DAILY
     Route: 065
     Dates: start: 20120919, end: 20120922
  6. CYANOCOBALAMIN (UNKNOWN) [Suspect]
     Indication: VITAMIN SUPPLEMENTATION
     Dosage: 1 DF, DAILY
     Route: 065
     Dates: start: 20120919, end: 20120922
  7. BIOTIN [Suspect]
     Indication: VITAMIN SUPPLEMENTATION
     Dosage: 1 DF, DAILY
     Route: 065
     Dates: start: 20120919, end: 20120922
  8. VITAMIN D /00107901/ [Suspect]
     Indication: VITAMIN SUPPLEMENTATION
     Dosage: 1 DF, DAILY
     Route: 065
     Dates: start: 20120919, end: 20120922
  9. NICOTINAMIDE [Suspect]
     Indication: VITAMIN SUPPLEMENTATION
     Dosage: 1 DF, DAILY
     Route: 065
     Dates: start: 20120919, end: 20120922
  10. IODINE [Suspect]
     Indication: VITAMIN SUPPLEMENTATION
     Dosage: 1 DF, DAILY
     Route: 065
     Dates: start: 20120919, end: 20120922

REACTIONS (3)
  - Urticaria [Unknown]
  - Eye swelling [Unknown]
  - Pruritus [Unknown]
